FAERS Safety Report 5380121-X (Version None)
Quarter: 2007Q3

REPORT INFORMATION
  Report Type: 
  Country: None (occurrence: None)
  Receive Date: 20070706
  Receipt Date: 20070426
  Transmission Date: 20080115
  Serious: No
  Sender: FDA-Public Use
  Company Number: A0648913A

PATIENT
  Age: 43 Year
  Sex: Female

DRUGS (8)
  1. TYKERB [Suspect]
     Indication: BREAST CANCER
     Dosage: 5TAB PER DAY
     Route: 048
     Dates: start: 20070417, end: 20070423
  2. XELODA [Concomitant]
  3. ALBUTEROL [Concomitant]
  4. SPIRIVA [Concomitant]
  5. ADVAIR DISKUS 100/50 [Concomitant]
  6. COREG [Concomitant]
  7. SYNTHROID [Concomitant]
  8. FLONASE [Concomitant]

REACTIONS (2)
  - DIARRHOEA [None]
  - RASH [None]
